FAERS Safety Report 5889321-3 (Version None)
Quarter: 2008Q3

REPORT INFORMATION
  Report Type: 
  Country: None (occurrence: None)
  Receive Date: 20080919
  Receipt Date: 20080911
  Transmission Date: 20090109
  Serious: Yes (Death, Life-Threatening, Hospitalization, Other)
  Sender: FDA-Public Use
  Company Number: ZA-ASTRAZENECA-2008SE03102

PATIENT
  Age: 28437 Day
  Sex: Female

DRUGS (4)
  1. ARIMIDEX [Suspect]
     Indication: BREAST CANCER
     Route: 048
     Dates: start: 20000317, end: 20050601
  2. NOLVADEX [Suspect]
     Indication: BREAST CANCER
     Route: 048
     Dates: start: 20000317, end: 20050601
  3. PHARMAPRESS [Concomitant]
     Indication: HYPERTENSION
  4. HYDROCHLOROTHIAZIDE [Concomitant]
     Indication: HYPERTENSION
     Route: 048
     Dates: start: 20000321

REACTIONS (1)
  - MYOCARDIAL INFARCTION [None]
